FAERS Safety Report 12657211 (Version 2)
Quarter: 2016Q3

REPORT INFORMATION
  Report Type: Spontaneous
  Country: US (occurrence: US)
  Receive Date: 20160816
  Receipt Date: 20160816
  Transmission Date: 20161109
  Serious: No
  Sender: FDA-Public Use
  Company Number: US-ENDO PHARMACEUTICALS INC.-2016-003152

PATIENT
  Age: 56 Year
  Sex: Male
  Weight: 93.07 kg

DRUGS (5)
  1. BUTALBITAL WITH CODEINE [Concomitant]
     Indication: MIGRAINE
  2. FISH OIL [Concomitant]
     Active Substance: FISH OIL
     Indication: BLOOD CHOLESTEROL INCREASED
  3. SUMAVEL DOSEPRO [Suspect]
     Active Substance: SUMATRIPTAN SUCCINATE
     Indication: MIGRAINE
     Route: 058
     Dates: start: 2012
  4. CRESTOR [Concomitant]
     Active Substance: ROSUVASTATIN CALCIUM
     Indication: BLOOD CHOLESTEROL INCREASED
  5. DEXILANT [Concomitant]
     Active Substance: DEXLANSOPRAZOLE
     Indication: GASTRIC DISORDER

REACTIONS (7)
  - Device malfunction [Recovered/Resolved]
  - Accidental underdose [Recovered/Resolved]
  - Accidental exposure to product [Recovered/Resolved]
  - Injection site pain [Unknown]
  - Drug ineffective [Recovered/Resolved]
  - Hypertension [Unknown]
  - Injection site haemorrhage [Unknown]

NARRATIVE: CASE EVENT DATE: 2012
